FAERS Safety Report 6276118-8 (Version None)
Quarter: 2009Q3

REPORT INFORMATION
  Report Type: 
  Country: None (occurrence: None)
  Receive Date: 20090717
  Receipt Date: 20090717
  Transmission Date: 20100115
  Serious: Yes (Hospitalization)
  Sender: FDA-Public Use
  Company Number: None

PATIENT
  Sex: Female
  Weight: 65.7716 kg

DRUGS (2)
  1. TRAMADOL HCL [Suspect]
     Indication: PAIN
     Dosage: 1 TABLET 3 X'S A DAY
     Dates: start: 20090624
  2. TRAMADOL HCL [Suspect]
     Indication: SPINAL FRACTURE
     Dosage: 1 TABLET 3 X'S A DAY
     Dates: start: 20090624

REACTIONS (5)
  - ABDOMINAL DISCOMFORT [None]
  - CHEST DISCOMFORT [None]
  - CHILLS [None]
  - HEADACHE [None]
  - TREMOR [None]
